FAERS Safety Report 5591308-5 (Version None)
Quarter: 2008Q1

REPORT INFORMATION
  Report Type: 
  Country: None (occurrence: None)
  Receive Date: 20080110
  Receipt Date: 20080110
  Transmission Date: 20080703
  Serious: Yes (Other)
  Sender: FDA-Public Use
  Company Number: None

PATIENT
  Age: 60 Year
  Sex: Male
  Weight: 101 kg

DRUGS (1)
  1. NAFCILLIN SODIUM [Suspect]
     Indication: PNEUMONIA STAPHYLOCOCCAL
     Dosage: 2 GRAM EVERY 4 HOURS IV
     Route: 042
     Dates: start: 20071224, end: 20080102

REACTIONS (2)
  - NEPHRITIS INTERSTITIAL [None]
  - RENAL FAILURE ACUTE [None]
